FAERS Safety Report 7349561-3 (Version None)
Quarter: 2011Q1

REPORT INFORMATION
  Report Type: 
  Country: None (occurrence: None)
  Receive Date: 20110314
  Receipt Date: 20110308
  Transmission Date: 20110831
  Serious: Yes (Death)
  Sender: FDA-Public Use
  Company Number: GB-US-EMD SERONO, INC.-7046422

PATIENT

DRUGS (1)
  1. REBIF [Suspect]

REACTIONS (1)
  - DEATH [None]
